FAERS Safety Report 12435716 (Version 1)
Quarter: 2016Q2

REPORT INFORMATION
  Report Type: Spontaneous
  Country: US (occurrence: US)
  Receive Date: 20160603
  Receipt Date: 20160603
  Transmission Date: 20160815
  Serious: Yes (Other)
  Sender: FDA-Public Use
  Company Number: US-ROCHE-1627903

PATIENT
  Age: 75 Year
  Sex: Female
  Weight: 53.57 kg

DRUGS (2)
  1. XELODA [Suspect]
     Active Substance: CAPECITABINE
     Indication: BREAST CANCER
     Dosage: 1500 MG IN MORNING AND 1000 MG AT NIGHT FOR 7 DAYS
     Route: 048
     Dates: start: 20150202
  2. XELODA [Suspect]
     Active Substance: CAPECITABINE
     Dosage: 1500 MG IN MORNING AND 1000 MG AT NIGHT FOR 7 DAYS
     Route: 048
     Dates: start: 20151203

REACTIONS (3)
  - Oral pain [Unknown]
  - Ataxia [Unknown]
  - Skin texture abnormal [Unknown]

NARRATIVE: CASE EVENT DATE: 20150828
